FAERS Safety Report 14272806 (Version 1)
Quarter: 2017Q4

REPORT INFORMATION
  Report Type: Spontaneous
  Country: PL (occurrence: PL)
  Receive Date: 20171211
  Receipt Date: 20171211
  Transmission Date: 20180321
  Serious: Yes (Disabling, Other)
  Sender: FDA-Public Use
  Company Number: PL-009507513-1712POL002775

PATIENT
  Age: 77 Year
  Sex: Female

DRUGS (6)
  1. PRESTARIUM (PERINDOPRIL ARGININE) [Concomitant]
     Active Substance: PERINDOPRIL ARGININE
     Indication: HYPERTENSION
  2. MAGNESIUM (UNSPECIFIED) [Concomitant]
     Active Substance: MAGNESIUM
     Indication: HYPERTENSION
  3. PREDUCTAL [Concomitant]
     Active Substance: TRIMETAZIDINE DIHYDROCHLORIDE
     Indication: HYPERTENSION
  4. ELOCOM [Suspect]
     Active Substance: MOMETASONE FUROATE
     Dosage: UNK UNK, QD
     Route: 061
     Dates: start: 201711, end: 201712
  5. ELOCOM [Suspect]
     Active Substance: MOMETASONE FUROATE
     Indication: SEBORRHOEIC DERMATITIS
     Dosage: UNK, QD
     Route: 061
     Dates: start: 201710, end: 201711
  6. EFFOX [Concomitant]
     Active Substance: ISOSORBIDE MONONITRATE
     Indication: HYPERTENSION

REACTIONS (4)
  - Tension headache [Unknown]
  - Skin wrinkling [Unknown]
  - Alopecia [Unknown]
  - Drug ineffective [Unknown]

NARRATIVE: CASE EVENT DATE: 201710
